FAERS Safety Report 16996151 (Version 1)
Quarter: 2019Q4

REPORT INFORMATION
  Report Type: Report from Study
  Country: CA (occurrence: CA)
  Receive Date: 20191105
  Receipt Date: 20191105
  Transmission Date: 20200122
  Serious: Yes (Hospitalization, Other)
  Sender: FDA-Public Use
  Company Number: PHHY2017CA080637

PATIENT
  Age: 65 Year
  Sex: Female
  Weight: 73.1 kg

DRUGS (7)
  1. METHOTREXATE. [Concomitant]
     Active Substance: METHOTREXATE
     Indication: PSORIATIC ARTHROPATHY
     Dosage: 20 MG, QW
     Route: 065
     Dates: start: 201609, end: 20170403
  2. COSENTYX [Suspect]
     Active Substance: SECUKINUMAB
     Dosage: 300 MG, UNK
     Route: 058
     Dates: start: 201802, end: 20180529
  3. ESTROGEN [Concomitant]
     Active Substance: ESTROGENS
     Indication: PROPHYLAXIS
     Dosage: 0.625 MG, QD
     Route: 065
     Dates: start: 2004
  4. COSENTYX [Suspect]
     Active Substance: SECUKINUMAB
     Indication: PSORIASIS
     Dosage: 300 MG, UNK
     Route: 058
     Dates: start: 20161124, end: 20161215
  5. TYLENOL [Concomitant]
     Active Substance: ACETAMINOPHEN
     Indication: ARTHRALGIA
     Dosage: 1 DF, UNK (Q4H/PRN)
     Route: 065
     Dates: start: 2014
  6. COSENTYX [Suspect]
     Active Substance: SECUKINUMAB
     Dosage: 300 MG, UNK
     Route: 058
     Dates: start: 20161222, end: 20170403
  7. PANTOPRAZOLE [Concomitant]
     Active Substance: PANTOPRAZOLE
     Indication: HIATUS HERNIA
     Dosage: 40 MG, QD
     Route: 065
     Dates: start: 2006

REACTIONS (6)
  - Pneumonia [Recovered/Resolved]
  - Clostridium difficile colitis [Recovered/Resolved]
  - Abdominal pain [Unknown]
  - Allergy to arthropod bite [Recovered/Resolved]
  - Diarrhoea [Unknown]
  - Viral upper respiratory tract infection [Recovered/Resolved]

NARRATIVE: CASE EVENT DATE: 20170417
